FAERS Safety Report 5531329-1 (Version None)
Quarter: 2007Q4

REPORT INFORMATION
  Report Type: 
  Country: None (occurrence: None)
  Receive Date: 20071128
  Receipt Date: 20071113
  Transmission Date: 20080405
  Serious: Yes (Other)
  Sender: FDA-Public Use
  Company Number: CHNY2007GB03797

PATIENT
  Sex: Female

DRUGS (1)
  1. HYOSCINE HBR HYT [Suspect]
     Indication: VOMITING
     Dosage: TRANSDERMAL CUT PATCHES, TRANSDERMAL
     Route: 062

REACTIONS (8)
  - DRUG DEPENDENCE [None]
  - DRUG EXPOSURE DURING PREGNANCY [None]
  - ECZEMA [None]
  - REBOUND EFFECT [None]
  - SKIN IRRITATION [None]
  - VOMITING [None]
  - WEIGHT DECREASED [None]
  - WRONG TECHNIQUE IN DRUG USAGE PROCESS [None]
